FAERS Safety Report 6167106-0 (Version None)
Quarter: 2009Q2

REPORT INFORMATION
  Report Type: 
  Country: None (occurrence: None)
  Receive Date: 20090424
  Receipt Date: 20090414
  Transmission Date: 20091009
  Serious: Yes (Other)
  Sender: FDA-Public Use
  Company Number: FR-JNJFOC-20090404754

PATIENT
  Age: 22 Year
  Sex: Female

DRUGS (7)
  1. INFLIXIMAB [Suspect]
     Indication: DRUG INEFFECTIVE
     Route: 042
  2. INFLIXIMAB [Suspect]
     Indication: CROHN'S DISEASE
     Route: 042
  3. ADALIMUMAB [Suspect]
     Dosage: TOTAL OF 2 INJECTIONS
     Route: 050
  4. ADALIMUMAB [Suspect]
     Indication: CROHN'S DISEASE
     Route: 050
  5. CERTOLIZUMAB [Concomitant]
     Dosage: 1 INJECTION AT 31 WEEKS GESTATION
     Route: 050
  6. CERTOLIZUMAB [Concomitant]
     Dosage: 1 INJECTION DURING FIRST TRIMESTER
     Route: 050
  7. CERTOLIZUMAB [Concomitant]
     Indication: CROHN'S DISEASE
     Dosage: TOTAL OF 11 INJECTIONS PRIOR TO CONCEPTION
     Route: 050

REACTIONS (3)
  - ANGIOEDEMA [None]
  - DRUG EXPOSURE BEFORE PREGNANCY [None]
  - PSORIASIS [None]
